FAERS Safety Report 4727955-X (Version None)
Quarter: 2005Q3

REPORT INFORMATION
  Report Type: 
  Country: None (occurrence: None)
  Receive Date: 20050725
  Receipt Date: 20050324
  Transmission Date: 20060218
  Serious: No
  Sender: FDA-Public Use
  Company Number: USA050394046

PATIENT
  Age: 5 Year
  Sex: Male
  Weight: 23 kg

DRUGS (1)
  1. STRATTERA [Suspect]
     Indication: ATTENTION DEFICIT/HYPERACTIVITY DISORDER
     Dosage: 35 MG IN THE MORNING
     Dates: start: 20050101

REACTIONS (2)
  - DRUG EFFECT DECREASED [None]
  - PRESCRIBED OVERDOSE [None]
